FAERS Safety Report 9415590 (Version 1)
Quarter: 2013Q3

REPORT INFORMATION
  Report Type: Spontaneous
  Country: FR (occurrence: FR)
  Receive Date: 20130723
  Receipt Date: 20130723
  Transmission Date: 20140515
  Serious: Yes (Death)
  Sender: FDA-Public Use
  Company Number: FR-CELGENEUS-056-50794-13071826

PATIENT
  Sex: 0

DRUGS (8)
  1. VIDAZA [Suspect]
     Indication: CHRONIC MYELOID LEUKAEMIA
     Route: 065
  2. VIDAZA [Suspect]
     Indication: ACUTE MYELOID LEUKAEMIA
  3. VIDAZA [Suspect]
     Indication: LYMPHOMA
  4. VIDAZA [Suspect]
     Indication: MYELODYSPLASTIC SYNDROME
  5. CYTARABINE [Concomitant]
     Indication: MYELODYSPLASTIC SYNDROME
     Route: 065
  6. CYTARABINE [Concomitant]
     Indication: ACUTE MYELOID LEUKAEMIA
  7. CYTARABINE [Concomitant]
     Indication: LYMPHOMA
  8. CYTARABINE [Concomitant]
     Indication: MYELODYSPLASTIC SYNDROME

REACTIONS (2)
  - Death [Fatal]
  - Toxicity to various agents [Unknown]
